FAERS Safety Report 7761604-1 (Version None)
Quarter: 2011Q3

REPORT INFORMATION
  Report Type: 
  Country: None (occurrence: None)
  Receive Date: 20110920
  Receipt Date: 20110826
  Transmission Date: 20111222
  Serious: No
  Sender: FDA-Public Use
  Company Number: US-BAYER-2011-079811

PATIENT
  Sex: Female

DRUGS (2)
  1. YAZ [Concomitant]
     Indication: OVARIAN CYST
  2. BEYAZ [Suspect]
     Dosage: UNK
     Dates: start: 20110801

REACTIONS (2)
  - DIZZINESS [None]
  - VERTIGO [None]
